FAERS Safety Report 4394603-0 (Version None)
Quarter: 2004Q3

REPORT INFORMATION
  Report Type: 
  Country: None (occurrence: None)
  Receive Date: 20040708
  Receipt Date: 20040621
  Transmission Date: 20050211
  Serious: Yes (Hospitalization)
  Sender: FDA-Public Use
  Company Number: 2004UW10707

PATIENT
  Age: 79 Year
  Sex: Male
  Weight: 63.5036 kg

DRUGS (2)
  1. CRESTOR [Suspect]
     Indication: BLOOD CHOLESTEROL INCREASED
     Dosage: 10 MG DAILY PO
     Route: 048
     Dates: start: 20031118, end: 20040310
  2. GLUCOSAMINE W/CHONDROITIN [Concomitant]

REACTIONS (2)
  - PNEUMONIA [None]
  - PULMONARY HYPERTENSION [None]
